FAERS Safety Report 4817596-8 (Version None)
Quarter: 2005Q4

REPORT INFORMATION
  Report Type: 
  Country: None (occurrence: None)
  Receive Date: 20051031
  Receipt Date: 20051020
  Transmission Date: 20060501
  Serious: No
  Sender: FDA-Public Use
  Company Number: 2005-10-0862

PATIENT
  Sex: Male

DRUGS (2)
  1. PEG-INTERFERON [Suspect]
  2. RIBAVIRIN [Suspect]
     Dosage: ORAL
     Route: 048

REACTIONS (2)
  - LYMPHADENOPATHY [None]
  - TESTICULAR SWELLING [None]
